FAERS Safety Report 11853576 (Version 1)
Quarter: 2015Q4

REPORT INFORMATION
  Report Type: Spontaneous
  Country: US (occurrence: US)
  Receive Date: 20151219
  Receipt Date: 20151219
  Transmission Date: 20160305
  Serious: No
  Sender: FDA-Public Use
  Company Number: US-BAUSCH-BL-2015-017904

PATIENT
  Sex: Male
  Weight: 81.72 kg

DRUGS (8)
  1. CLOPIDOGREL [Concomitant]
     Active Substance: CLOPIDOGREL BISULFATE
     Indication: VENTRICULAR FIBRILLATION
     Route: 048
  2. CETIRIZINE [Concomitant]
     Active Substance: CETIRIZINE HYDROCHLORIDE
     Indication: SEASONAL ALLERGY
     Dosage: AS NEEDED
     Route: 048
  3. XENAZINE [Suspect]
     Active Substance: TETRABENAZINE
     Indication: DYSTONIA
     Route: 048
  4. XENAZINE [Suspect]
     Active Substance: TETRABENAZINE
     Route: 048
     Dates: start: 20150624
  5. XENAZINE [Suspect]
     Active Substance: TETRABENAZINE
     Route: 048
     Dates: start: 201507
  6. TOPROL XL [Concomitant]
     Active Substance: METOPROLOL SUCCINATE
     Indication: VENTRICULAR FIBRILLATION
     Route: 048
  7. PANTOPRAZOLE [Concomitant]
     Active Substance: PANTOPRAZOLE SODIUM
     Indication: GASTROOESOPHAGEAL REFLUX DISEASE
     Route: 048
  8. CLOBETASOL CREAM [Concomitant]
     Active Substance: CLOBETASOL
     Indication: RASH
     Dosage: AS NEEDED
     Route: 061

REACTIONS (8)
  - Pain [Recovering/Resolving]
  - Prescribed overdose [Unknown]
  - Off label use [Unknown]
  - Unevaluable event [Recovering/Resolving]
  - Aggression [Recovering/Resolving]
  - Irritability [Recovering/Resolving]
  - Headache [Recovering/Resolving]
  - Agitation [Recovering/Resolving]
